FAERS Safety Report 21080231 (Version 3)
Quarter: 2022Q3

REPORT INFORMATION
  Report Type: Spontaneous
  Country: US (occurrence: US)
  Receive Date: 20220714
  Receipt Date: 20220729
  Transmission Date: 20221026
  Serious: Yes (Other)
  Sender: FDA-Public Use
  Company Number: US-PFIZER INC-PV202200021718

PATIENT
  Age: 69 Year
  Sex: Female
  Weight: 62.132 kg

DRUGS (1)
  1. PREMARIN [Suspect]
     Active Substance: ESTROGENS, CONJUGATED
     Dosage: UNK, 1X/DAY (1/2 APPLICATOR ONCE A DAY)
     Dates: start: 20220614, end: 20220622

REACTIONS (2)
  - Skin irritation [Recovered/Resolved]
  - Prolapse [Unknown]

NARRATIVE: CASE EVENT DATE: 20220630
